FAERS Safety Report 7520156-1 (Version None)
Quarter: 2011Q2

REPORT INFORMATION
  Report Type: 
  Country: None (occurrence: None)
  Receive Date: 20110602
  Receipt Date: 20110601
  Transmission Date: 20111010
  Serious: Yes (Other)
  Sender: FDA-Public Use
  Company Number: US-UCBSA-024892

PATIENT
  Sex: Female
  Weight: 92 kg

DRUGS (16)
  1. CIMZIA [Suspect]
     Indication: CROHN'S DISEASE
     Dosage: INDUCTION DOSE
     Route: 058
     Dates: start: 20100901
  2. HYDROCHLOROTHIAZIDE [Concomitant]
     Indication: SWELLING
     Dates: start: 20101201
  3. SLOW RELEASE IRON [Concomitant]
     Indication: IRON DEFICIENCY ANAEMIA
     Dates: start: 20101201
  4. ASCORBIC ACID [Concomitant]
     Indication: VITAMIN SUPPLEMENTATION
  5. VITAMIN B-12 [Concomitant]
     Indication: VITAMIN SUPPLEMENTATION
  6. CIMZIA [Suspect]
     Route: 058
     Dates: start: 20101001
  7. VITAMIN D [Concomitant]
     Indication: VITAMIN SUPPLEMENTATION
  8. PREDNISONE [Concomitant]
     Indication: RASH
     Route: 048
  9. XIFAMIN [Concomitant]
     Indication: ANTIBIOTIC THERAPY
  10. TRAMADOL HYDROCHLORIDE [Concomitant]
  11. CIMZIA [Suspect]
     Route: 058
  12. RANITIDINE [Concomitant]
     Indication: GASTROOESOPHAGEAL REFLUX DISEASE
     Dosage: 1 TABLET
     Route: 048
  13. CIMZIA [Suspect]
     Route: 058
  14. CIPRO [Concomitant]
     Indication: ANTIBIOTIC THERAPY
     Dosage: TOOK 2 DOSES
     Route: 048
     Dates: start: 20110501
  15. ZYRTEC [Concomitant]
     Indication: ALLERGIC SINUSITIS
  16. PROTONIX [Concomitant]
     Route: 048

REACTIONS (9)
  - COUGH [None]
  - CHEST DISCOMFORT [None]
  - LOCAL SWELLING [None]
  - LYME DISEASE [None]
  - JARISCH-HERXHEIMER REACTION [None]
  - ASTHENIA [None]
  - FEELING OF BODY TEMPERATURE CHANGE [None]
  - ABDOMINAL PAIN LOWER [None]
  - RASH [None]
